FAERS Safety Report 23887947 (Version 1)
Quarter: 2024Q2

REPORT INFORMATION
  Report Type: Spontaneous
  Country: JP (occurrence: None)
  Receive Date: 20240523
  Receipt Date: 20240523
  Transmission Date: 20240715
  Serious: Yes (Other)
  Sender: FDA-Public Use
  Company Number: 2024A115991

PATIENT
  Sex: Male

DRUGS (1)
  1. BREZTRI [Suspect]
     Active Substance: BUDESONIDE\FORMOTEROL\GLYCOPYRROLATE
     Dosage: DOSE UNKNOWN
     Route: 055

REACTIONS (4)
  - Prostate cancer [Recovered/Resolved]
  - Urinary incontinence [Unknown]
  - Nocturia [Unknown]
  - Glaucoma [Unknown]

NARRATIVE: CASE EVENT DATE: 20240101
